FAERS Safety Report 16730578 (Version 1)
Quarter: 2019Q3

REPORT INFORMATION
  Report Type: Spontaneous
  Country: US (occurrence: US)
  Receive Date: 20190822
  Receipt Date: 20190822
  Transmission Date: 20191005
  Serious: No
  Sender: FDA-Public Use
  Company Number: US-JNJFOC-20190823715

PATIENT
  Sex: Female
  Weight: 47.67 kg

DRUGS (1)
  1. TRINESSA [Suspect]
     Active Substance: ETHINYL ESTRADIOL\NORGESTIMATE
     Indication: CONTRACEPTION
     Dosage: MORE THEN 10 YEARS AGO
     Route: 048

REACTIONS (2)
  - Mood swings [Recovered/Resolved]
  - Abnormal weight gain [Recovered/Resolved]
